FAERS Safety Report 5901567-4 (Version None)
Quarter: 2008Q3

REPORT INFORMATION
  Report Type: 
  Country: None (occurrence: None)
  Receive Date: 20080926
  Receipt Date: 20080926
  Transmission Date: 20090109
  Serious: No
  Sender: FDA-Public Use
  Company Number: None

PATIENT
  Sex: Female
  Weight: 68.0396 kg

DRUGS (1)
  1. ESTRADIOL [Suspect]
     Indication: MENOPAUSE
     Dosage: 0.025MG/DAY APPLY TWICE A WEEK TOP
     Route: 061
     Dates: start: 20080401, end: 20080925

REACTIONS (1)
  - DEVICE FAILURE [None]
